FAERS Safety Report 14230477 (Version 2)
Quarter: 2017Q4

REPORT INFORMATION
  Report Type: Report from Study
  Country: IL (occurrence: IL)
  Receive Date: 20171128
  Receipt Date: 20171211
  Transmission Date: 20180321
  Serious: Yes (Hospitalization)
  Sender: FDA-Public Use
  Company Number: IL-ACTELION-A-CH2017-162799

PATIENT
  Age: 58 Year
  Sex: Male

DRUGS (9)
  1. ILOMEDIN [Concomitant]
     Active Substance: ILOPROST TROMETHAMINE
  2. UPTRAVI [Suspect]
     Active Substance: SELEXIPAG
     Indication: PULMONARY ARTERIAL HYPERTENSION
     Dosage: 200 ?G, BID
     Route: 048
     Dates: start: 20171115
  3. PREDNISONE. [Concomitant]
     Active Substance: PREDNISONE
  4. UPTRAVI [Suspect]
     Active Substance: SELEXIPAG
     Dosage: 400 ?G, BID
     Route: 048
     Dates: start: 20171122, end: 20171129
  5. OPSUMIT [Suspect]
     Active Substance: MACITENTAN
     Indication: PULMONARY ARTERIAL HYPERTENSION
     Dosage: 10 MG, QD
     Route: 048
     Dates: start: 20160201
  6. TADALAFIL [Concomitant]
     Active Substance: TADALAFIL
  7. NEXIUM [Concomitant]
     Active Substance: ESOMEPRAZOLE MAGNESIUM
  8. FUSID [Concomitant]
     Active Substance: FUROSEMIDE
     Route: 042
  9. UPTRAVI [Suspect]
     Active Substance: SELEXIPAG
     Dosage: 600 ?G, BID
     Route: 048
     Dates: start: 20171129

REACTIONS (2)
  - Vasculitis [Unknown]
  - Pyrexia [Unknown]
